FAERS Safety Report 9632254 (Version 1)
Quarter: 2013Q4

REPORT INFORMATION
  Report Type: Spontaneous
  Country: US (occurrence: US)
  Receive Date: 20131018
  Receipt Date: 20131018
  Transmission Date: 20140711
  Serious: Yes (Hospitalization, Disabling, Other)
  Sender: FDA-Public Use
  Company Number: US-TEVA-439053USA

PATIENT
  Age: 51 Year
  Sex: Female

DRUGS (2)
  1. ALENDRONIC ACID [Suspect]
  2. FOSAMAX [Suspect]

REACTIONS (4)
  - Lower limb fracture [Unknown]
  - Femur fracture [Unknown]
  - Bone disorder [Unknown]
  - Low turnover osteopathy [Unknown]
